FAERS Safety Report 4539007-2 (Version None)
Quarter: 2004Q4

REPORT INFORMATION
  Report Type: 
  Country: None (occurrence: None)
  Receive Date: 20041222
  Receipt Date: 20041207
  Transmission Date: 20050328
  Serious: Yes (Other)
  Sender: FDA-Public Use
  Company Number: USA041183255

PATIENT
  Age: 56 Year
  Sex: Female
  Weight: 86 kg

DRUGS (1)
  1. EVISTA [Suspect]
     Indication: OSTEOPOROSIS
     Dosage: 60 MG DAY
     Dates: start: 19970101, end: 20040101

REACTIONS (3)
  - ADENOCARCINOMA [None]
  - ENDOMETRIAL CANCER STAGE III [None]
  - POSTMENOPAUSAL HAEMORRHAGE [None]
